FAERS Safety Report 9230660 (Version 4)
Quarter: 2014Q2

REPORT INFORMATION
  Report Type: Spontaneous
  Country: US (occurrence: None)
  Receive Date: 20121031
  Receipt Date: 20130724
  Transmission Date: 20141212
  Serious: No
  Sender: FDA-Public Use
  Company Number: PHEH2012US016257

PATIENT
  Age: 48 Year
  Sex: Female

DRUGS (4)
  1. GILENYA (FTY)CAPSULE, 0.5MG [Suspect]
     Indication: MULTIPLE SCLEROSIS
     Route: 048
     Dates: start: 20120809
  2. BLACK COHOSH (CIMICIFUGA RACEMOSA ROOT) [Concomitant]
  3. GABAPENTIN (GABAPENTIN) [Concomitant]
  4. ALLEGRA [Concomitant]

REACTIONS (6)
  - Headache [None]
  - Nasal dryness [None]
  - Dry eye [None]
  - Nasal disorder [None]
  - Pollakiuria [None]
  - Fungal infection [None]
